FAERS Safety Report 20727656 (Version 1)
Quarter: 2022Q2

REPORT INFORMATION
  Report Type: Spontaneous
  Country: US (occurrence: None)
  Receive Date: 20220419
  Receipt Date: 20220419
  Transmission Date: 20220720
  Serious: Yes (Other)
  Sender: FDA-Public Use
  Company Number: US-ROCHE-3001395

PATIENT
  Sex: Female

DRUGS (2)
  1. AVASTIN [Suspect]
     Active Substance: BEVACIZUMAB
     Indication: Ovarian cancer
     Route: 042
     Dates: start: 20211027
  2. DOXORUBICIN [Concomitant]
     Active Substance: DOXORUBICIN

REACTIONS (2)
  - Proteinuria [Unknown]
  - Blood pressure increased [Unknown]
